FAERS Safety Report 11942318 (Version 2)
Quarter: 2016Q1

REPORT INFORMATION
  Report Type: Spontaneous
  Country: JP (occurrence: JP)
  Receive Date: 20160125
  Receipt Date: 20160310
  Transmission Date: 20160526
  Serious: Yes (Hospitalization, Other)
  Sender: FDA-Public Use
  Company Number: JP-ORION CORPORATION ORION PHARMA-ENTC2016-0025

PATIENT
  Sex: Female

DRUGS (4)
  1. STALEVO [Suspect]
     Active Substance: CARBIDOPA\ENTACAPONE\LEVODOPA
     Route: 048
  2. NEUPRO [Concomitant]
     Active Substance: ROTIGOTINE
     Route: 065
  3. COMTAN [Suspect]
     Active Substance: ENTACAPONE
     Route: 048
  4. STALEVO [Suspect]
     Active Substance: CARBIDOPA\ENTACAPONE\LEVODOPA
     Indication: PARKINSON^S DISEASE
     Route: 048

REACTIONS (11)
  - Urinary incontinence [Unknown]
  - Impaired quality of life [Unknown]
  - Decreased appetite [Unknown]
  - Fall [Unknown]
  - Drug effect decreased [Unknown]
  - Dysphagia [Unknown]
  - Drug effect increased [Unknown]
  - Impulsive behaviour [Unknown]
  - Wrong technique in product usage process [Unknown]
  - Dementia with Lewy bodies [Unknown]
  - Hypovolaemia [Unknown]
